FAERS Safety Report 9282767 (Version 3)
Quarter: 2013Q2

REPORT INFORMATION
  Report Type: Spontaneous
  Country: CA (occurrence: None)
  Receive Date: 20101119
  Receipt Date: 20130419
  Transmission Date: 20140414
  Serious: Yes (Life-Threatening)
  Sender: FDA-Public Use
  Company Number: 54973 RSAE102510SW-002

PATIENT
  Age: 14 Month
  Sex: Male

DRUGS (1)
  1. HYLAND^S TEETHING TABLETS [Suspect]
     Indication: TEETHING
     Dosage: 1 TAB  1-2  X  PER  DAY

REACTIONS (2)
  - Eye movement disorder [None]
  - Muscle tightness [None]
